FAERS Safety Report 22129612 (Version 1)
Quarter: 2023Q1

REPORT INFORMATION
  Report Type: Spontaneous
  Country: US (occurrence: None)
  Receive Date: 20230322
  Receipt Date: 20230322
  Transmission Date: 20230417
  Serious: Yes (Disabling, Other)
  Sender: FDA-Public Use
  Company Number: None

PATIENT
  Age: 34 Year
  Sex: Female
  Weight: 119.25 kg

DRUGS (3)
  1. FERAHEME [Suspect]
     Active Substance: FERUMOXYTOL NON-STOICHIOMETRIC MAGNETITE
     Indication: Iron deficiency anaemia
     Dosage: OTHER QUANTITY : 11 DROP(S);?OTHER FREQUENCY : NEVER TAKEN BEFORE;?
     Route: 042
     Dates: start: 20230317, end: 20230317
  2. FLONASE [Concomitant]
     Active Substance: FLUTICASONE PROPIONATE
  3. MOTRIN [Concomitant]
     Active Substance: IBUPROFEN

REACTIONS (2)
  - Anaphylactic reaction [None]
  - Infusion site thrombosis [None]

NARRATIVE: CASE EVENT DATE: 20230317
